FAERS Safety Report 20160735 (Version 1)
Quarter: 2021Q4

REPORT INFORMATION
  Report Type: Spontaneous
  Country: US (occurrence: US)
  Receive Date: 20211208
  Receipt Date: 20211208
  Transmission Date: 20220303
  Serious: No
  Sender: FDA-Public Use
  Company Number: US-PFIZER INC-2020484142

PATIENT
  Age: 8 Year
  Sex: Female

DRUGS (1)
  1. GENOTROPIN [Suspect]
     Active Substance: SOMATROPIN
     Dosage: 0.6 MG 4 DAYS A WEEK AND 0.8 MG 3 DAYS A WEEK
     Dates: start: 20200303

REACTIONS (2)
  - Device issue [Unknown]
  - Device information output issue [Unknown]
